FAERS Safety Report 6262064-2 (Version None)
Quarter: 2009Q3

REPORT INFORMATION
  Report Type: 
  Country: None (occurrence: None)
  Receive Date: 20090707
  Receipt Date: 20090707
  Transmission Date: 20100115
  Serious: No
  Sender: FDA-Public Use
  Company Number: None

PATIENT
  Age: 69 Year
  Sex: Female
  Weight: 82 kg

DRUGS (2)
  1. CUBICIN [Suspect]
     Indication: BLOOD CULTURE
     Dosage: 500 MG ONE TIME IV
     Route: 042
     Dates: start: 20090703, end: 20090703
  2. CUBICIN [Suspect]
     Indication: STAPHYLOCOCCAL INFECTION
     Dosage: 500 MG ONE TIME IV
     Route: 042
     Dates: start: 20090703, end: 20090703

REACTIONS (4)
  - BODY TEMPERATURE INCREASED [None]
  - CHILLS [None]
  - DRUG HYPERSENSITIVITY [None]
  - ELECTROCARDIOGRAM CHANGE [None]
